FAERS Safety Report 13795180 (Version 1)
Quarter: 2017Q3

REPORT INFORMATION
  Report Type: Spontaneous
  Country: JP (occurrence: JP)
  Receive Date: 20170726
  Receipt Date: 20170726
  Transmission Date: 20171127
  Serious: Yes (Hospitalization, Other)
  Sender: FDA-Public Use
  Company Number: PHHY2017JP106398

PATIENT
  Age: 78 Year
  Sex: Male

DRUGS (3)
  1. METHOTREXATE. [Suspect]
     Active Substance: METHOTREXATE
     Indication: RHEUMATOID ARTHRITIS
     Dosage: 8 MG, QW
     Route: 065
  2. METHOTREXATE. [Suspect]
     Active Substance: METHOTREXATE
     Dosage: 12 MG, QW
     Route: 065
  3. TOFACITINIB [Suspect]
     Active Substance: TOFACITINIB
     Indication: RHEUMATOID ARTHRITIS
     Dosage: 10 MG, QD
     Route: 065

REACTIONS (10)
  - Vasculitis [Recovering/Resolving]
  - Drug effect incomplete [Unknown]
  - Retinitis [Recovering/Resolving]
  - Pyrexia [Unknown]
  - Immune recovery uveitis [Recovering/Resolving]
  - Visual impairment [Recovering/Resolving]
  - Fatigue [Unknown]
  - Cytomegalovirus chorioretinitis [Recovering/Resolving]
  - Pneumocystis jirovecii pneumonia [Unknown]
  - Vitreous opacities [Recovering/Resolving]
